FAERS Safety Report 4787189-X (Version None)
Quarter: 2005Q3

REPORT INFORMATION
  Report Type: 
  Country: None (occurrence: None)
  Receive Date: 20050927
  Receipt Date: 20050620
  Transmission Date: 20060218
  Serious: No
  Sender: FDA-Public Use
  Company Number: USA0506100889

PATIENT
  Age: 45 Year
  Sex: Male

DRUGS (3)
  1. STRATTERA [Suspect]
     Dosage: 60 MG
     Dates: start: 20050101
  2. FLUOXETINE [Suspect]
  3. LISINOPRIL [Concomitant]

REACTIONS (3)
  - CATECHOLAMINES URINE INCREASED [None]
  - HEART RATE INCREASED [None]
  - HYPERTENSION [None]
